FAERS Safety Report 16846905 (Version 3)
Quarter: 2020Q3

REPORT INFORMATION
  Report Type: Spontaneous
  Country: US (occurrence: US)
  Receive Date: 20190924
  Receipt Date: 20200828
  Transmission Date: 20201102
  Serious: Yes (Hospitalization, Other)
  Sender: FDA-Public Use
  Company Number: US-GILEAD-2019-0429338

PATIENT
  Age: 46 Year
  Sex: Male
  Weight: 58.96 kg

DRUGS (67)
  1. LAMIVUDINE. [Concomitant]
     Active Substance: LAMIVUDINE
  2. RALTEGRAVIR. [Concomitant]
     Active Substance: RALTEGRAVIR
  3. COMBIVENT RESPIMAT [Concomitant]
     Active Substance: ALBUTEROL SULFATE\IPRATROPIUM BROMIDE
  4. MELOXICAM. [Concomitant]
     Active Substance: MELOXICAM
  5. PROMETHAZINE ? DEXTROMETHORPHANE [Concomitant]
  6. SIMETHICONE (DIMETHICONE) [Concomitant]
     Active Substance: DIMETHICONE
  7. ZYPREXA [Concomitant]
     Active Substance: OLANZAPINE
  8. ISENTRESS [Concomitant]
     Active Substance: RALTEGRAVIR POTASSIUM
  9. TRAMADOL. [Concomitant]
     Active Substance: TRAMADOL
  10. BACTRIM [Concomitant]
     Active Substance: SULFAMETHOXAZOLE\TRIMETHOPRIM
  11. OXYCODONE [Concomitant]
     Active Substance: OXYCODONE
  12. ENOXAPARIN [Concomitant]
     Active Substance: ENOXAPARIN
  13. HALOPERIDOL. [Concomitant]
     Active Substance: HALOPERIDOL
  14. BENADRYL [Concomitant]
     Active Substance: DIPHENHYDRAMINE HYDROCHLORIDE
  15. TRUVADA [Suspect]
     Active Substance: EMTRICITABINE\TENOFOVIR DISOPROXIL FUMARATE
     Dosage: UNK
     Route: 065
     Dates: start: 20120207, end: 20171206
  16. VIREAD [Suspect]
     Active Substance: TENOFOVIR DISOPROXIL FUMARATE
     Indication: HIV INFECTION
     Dosage: UNK
     Route: 048
     Dates: start: 2004
  17. COMPLERA [Suspect]
     Active Substance: EMTRICITABINE\RILPIVIRINE HYDROCHLORIDE\TENOFOVIR DISOPROXIL FUMARATE
     Indication: HIV INFECTION
     Dosage: UNK
     Route: 048
     Dates: start: 2004
  18. CLARITHROMYCIN. [Concomitant]
     Active Substance: CLARITHROMYCIN
  19. ACYCLOVIR [ACICLOVIR] [Concomitant]
     Active Substance: ACYCLOVIR
  20. ALBUTEROL [SALBUTAMOL] [Concomitant]
     Active Substance: ALBUTEROL
  21. SERTRALINE [Concomitant]
     Active Substance: SERTRALINE HYDROCHLORIDE
  22. RANITIDINE. [Concomitant]
     Active Substance: RANITIDINE
  23. LABETALOL [Concomitant]
     Active Substance: LABETALOL\LABETALOL HYDROCHLORIDE
  24. PANTOPRAZOLE [Concomitant]
     Active Substance: PANTOPRAZOLE
  25. ATIVAN [Concomitant]
     Active Substance: LORAZEPAM
  26. BUPROPION. [Concomitant]
     Active Substance: BUPROPION
  27. ONDANSETRON [Concomitant]
     Active Substance: ONDANSETRON
  28. NYSTATIN. [Concomitant]
     Active Substance: NYSTATIN
  29. CLONIDINE. [Concomitant]
     Active Substance: CLONIDINE
  30. CEFTRIAXONE. [Concomitant]
     Active Substance: CEFTRIAXONE
  31. GLUCAGON. [Concomitant]
     Active Substance: GLUCAGON
  32. PHENERGAN [Concomitant]
     Active Substance: PROMETHAZINE HYDROCHLORIDE
  33. EPIVIR [Concomitant]
     Active Substance: LAMIVUDINE
  34. AMBIEN [Concomitant]
     Active Substance: ZOLPIDEM TARTRATE
  35. QUETIAPINE. [Concomitant]
     Active Substance: QUETIAPINE
  36. SULFAMETHOXAZOLE AND TRIMETHOPRIM [Concomitant]
     Active Substance: SULFAMETHOXAZOLE\TRIMETHOPRIM
  37. PROTONIX [OMEPRAZOLE] [Concomitant]
     Active Substance: OMEPRAZOLE
  38. OLANZAPINE. [Concomitant]
     Active Substance: OLANZAPINE
  39. RISPERIDONE. [Concomitant]
     Active Substance: RISPERIDONE
  40. TRANDATE [Concomitant]
     Active Substance: LABETALOL HYDROCHLORIDE
  41. KETOROLAC [Concomitant]
     Active Substance: KETOROLAC TROMETHAMINE
  42. AMOXICILLIN. [Concomitant]
     Active Substance: AMOXICILLIN
  43. ALPRAZOLAM. [Concomitant]
     Active Substance: ALPRAZOLAM
  44. BUSPIRONE [Concomitant]
     Active Substance: BUSPIRONE HYDROCHLORIDE
  45. CYCLOBENZAPRINE. [Concomitant]
     Active Substance: CYCLOBENZAPRINE
  46. SENOKOT?S [Concomitant]
     Active Substance: DOCUSATE SODIUM\SENNOSIDES
  47. DIPHENHYDRAMINE. [Concomitant]
     Active Substance: DIPHENHYDRAMINE
  48. ATRIPLA [Suspect]
     Active Substance: EFAVIRENZ\EMTRICITABINE\TENOFOVIR DISOPROXIL FUMARATE
     Indication: HIV INFECTION
     Dosage: UNK
     Route: 048
     Dates: start: 2004
  49. COMPLERA [Suspect]
     Active Substance: EMTRICITABINE\RILPIVIRINE HYDROCHLORIDE\TENOFOVIR DISOPROXIL FUMARATE
     Dosage: UNK
     Route: 065
     Dates: start: 20180102, end: 20180531
  50. LEVOFLOXACIN. [Concomitant]
     Active Substance: LEVOFLOXACIN
  51. LISINOPRIL AND HYDROCHLOROTHIAZIDE [Concomitant]
     Active Substance: HYDROCHLOROTHIAZIDE\LISINOPRIL
  52. DIALYSATE [Concomitant]
  53. HALDOL [Concomitant]
     Active Substance: HALOPERIDOL
  54. TRUVADA [Suspect]
     Active Substance: EMTRICITABINE\TENOFOVIR DISOPROXIL FUMARATE
     Indication: HIV INFECTION
     Dosage: UNK
     Route: 048
     Dates: start: 2004
  55. KALETRA [Concomitant]
     Active Substance: LOPINAVIR\RITONAVIR
  56. ODEFSEY [Concomitant]
     Active Substance: EMTRICITABINE\RILPIVIRINE HYDROCHLORIDE\TENOFOVIR ALAFENAMIDE FUMARATE
  57. IBUPROFEN. [Concomitant]
     Active Substance: IBUPROFEN
  58. TEMAZEPAM. [Concomitant]
     Active Substance: TEMAZEPAM
  59. ENOXAPARIN [Concomitant]
     Active Substance: ENOXAPARIN
  60. ACETAMINOPHEN. [Concomitant]
     Active Substance: ACETAMINOPHEN
  61. LORAZEPAM. [Concomitant]
     Active Substance: LORAZEPAM
  62. CALCIUM ACETATE. [Concomitant]
     Active Substance: CALCIUM ACETATE
  63. AMLODIPINE [Concomitant]
     Active Substance: AMLODIPINE BESYLATE
  64. SODIUM CHLORIDE. [Concomitant]
     Active Substance: SODIUM CHLORIDE
  65. INSULIN ASPART [Concomitant]
     Active Substance: INSULIN ASPART
  66. CLONAZEPAM. [Concomitant]
     Active Substance: CLONAZEPAM
  67. KLONOPIN [Concomitant]
     Active Substance: CLONAZEPAM

REACTIONS (8)
  - Chronic kidney disease [Not Recovered/Not Resolved]
  - Pain [Not Recovered/Not Resolved]
  - Economic problem [Not Recovered/Not Resolved]
  - Depression [Not Recovered/Not Resolved]
  - Emotional distress [Not Recovered/Not Resolved]
  - Anhedonia [Not Recovered/Not Resolved]
  - Anxiety [Not Recovered/Not Resolved]
  - Acute kidney injury [Not Recovered/Not Resolved]

NARRATIVE: CASE EVENT DATE: 2013
